FAERS Safety Report 8939924 (Version 2)
Quarter: 2012Q4

REPORT INFORMATION
  Report Type: 
  Country: US (occurrence: US)
  Receive Date: 20121121
  Receipt Date: 20121212
  Transmission Date: 20130627
  Serious: Yes (Death, Life-Threatening)
  Sender: FDA-Public Use
  Company Number: US-ASTELLAS-1113231

PATIENT
  Sex: Male

DRUGS (6)
  1. AVASTIN [Suspect]
     Indication: RENAL CANCER
     Route: 065
     Dates: start: 20041119
  2. TARCEVA [Suspect]
     Indication: PRODUCT USED FOR UNKNOWN INDICATION
     Route: 065
  3. XELODA [Suspect]
     Indication: PRODUCT USED FOR UNKNOWN INDICATION
     Route: 065
  4. THALIDOMIDE [Concomitant]
     Route: 065
     Dates: start: 200305, end: 20031002
  5. GEMZAR [Concomitant]
  6. IRESSA [Concomitant]
     Route: 065
     Dates: start: 20041119

REACTIONS (3)
  - Metastases to the mediastinum [Fatal]
  - Malaise [Unknown]
  - Weight decreased [Unknown]
